FAERS Safety Report 8814745 (Version 2)
Quarter: 2012Q4

REPORT INFORMATION
  Report Type: 
  Country: US (occurrence: US)
  Receive Date: 20120928
  Receipt Date: 20121101
  Transmission Date: 20130627
  Serious: Yes (Other)
  Sender: FDA-Public Use
  Company Number: US-PFIZER INC-2012239119

PATIENT
  Age: 54 Year
  Sex: Female

DRUGS (1)
  1. RELPAX [Suspect]
     Dosage: 40 mg, 1x/day

REACTIONS (1)
  - Migraine [Unknown]
